FAERS Safety Report 21600338 (Version 1)
Quarter: 2022Q4

REPORT INFORMATION
  Report Type: Spontaneous
  Country: IT (occurrence: IT)
  Receive Date: 20221116
  Receipt Date: 20221116
  Transmission Date: 20230113
  Serious: Yes (Other)
  Sender: FDA-Public Use
  Company Number: None

PATIENT
  Age: 46 Year
  Sex: Female

DRUGS (2)
  1. LEMTRADA [Suspect]
     Active Substance: ALEMTUZUMAB
     Indication: Relapsing-remitting multiple sclerosis
     Dosage: 60 MG + 36 MG PER YEAR
     Route: 041
     Dates: start: 20190410
  2. LEMTRADA [Suspect]
     Active Substance: ALEMTUZUMAB
     Dosage: 60 MG + 36 MG PER YEAR
     Route: 041
     Dates: end: 20200424

REACTIONS (2)
  - Weight decreased [Not Recovered/Not Resolved]
  - Thyroiditis chronic [Not Recovered/Not Resolved]

NARRATIVE: CASE EVENT DATE: 20220722
